FAERS Safety Report 10467803 (Version 3)
Quarter: 2014Q4

REPORT INFORMATION
  Report Type: Spontaneous
  Country: FI (occurrence: FI)
  Receive Date: 20140922
  Receipt Date: 20141020
  Transmission Date: 20150528
  Serious: Yes (Other)
  Sender: FDA-Public Use
  Company Number: FI-BRISTOL-MYERS SQUIBB COMPANY-21379490

PATIENT
  Age: 33 Year
  Sex: Female

DRUGS (11)
  1. BURANA [Concomitant]
     Active Substance: IBUPROFEN
  2. CETIRIZINE [Concomitant]
     Active Substance: CETIRIZINE HYDROCHLORIDE
  3. NEXIUM [Concomitant]
     Active Substance: ESOMEPRAZOLE MAGNESIUM
  4. PANACOD [Concomitant]
     Active Substance: ACETAMINOPHEN\CODEINE PHOSPHATE
  5. PREDNISOLONE. [Concomitant]
     Active Substance: PREDNISOLONE
  6. SIRDALUD [Concomitant]
     Active Substance: TIZANIDINE
  7. ORENCIA [Suspect]
     Active Substance: ABATACEPT
     Indication: RHEUMATOID ARTHRITIS
     Dosage: INTERRUPTED:FEB2014;RESTARTED:MAR2014
     Route: 058
     Dates: start: 201311, end: 201406
  8. METOJECT [Suspect]
     Active Substance: METHOTREXATE SODIUM
     Dates: end: 201406
  9. HUMIRA [Concomitant]
     Active Substance: ADALIMUMAB
  10. SALAZOPYRIN [Concomitant]
     Active Substance: SULFASALAZINE
  11. TRIPTYL [Concomitant]
     Active Substance: AMITRIPTYLINE HYDROCHLORIDE

REACTIONS (4)
  - Respiratory tract infection [Unknown]
  - Demyelination [Unknown]
  - Arthropathy [Unknown]
  - Nausea [Unknown]

NARRATIVE: CASE EVENT DATE: 2014
